FAERS Safety Report 6773579-2 (Version None)
Quarter: 2010Q2

REPORT INFORMATION
  Report Type: 
  Country: None (occurrence: None)
  Receive Date: 20100614
  Receipt Date: 20100607
  Transmission Date: 20101027
  Serious: Yes (Hospitalization)
  Sender: FDA-Public Use
  Company Number: 2010SP031859

PATIENT
  Age: 43 Year
  Sex: Male

DRUGS (8)
  1. MIRTAZAPINE [Suspect]
     Indication: DEPRESSION
     Dosage: 15 MG;QD;PO, 30 MG;QD;PO, 15 MG;QD;PO, 15 MG;QD;PO
     Route: 048
     Dates: start: 20100215, end: 20100218
  2. MIRTAZAPINE [Suspect]
     Indication: DEPRESSION
     Dosage: 15 MG;QD;PO, 30 MG;QD;PO, 15 MG;QD;PO, 15 MG;QD;PO
     Route: 048
     Dates: start: 20100219, end: 20100318
  3. MIRTAZAPINE [Suspect]
     Indication: DEPRESSION
     Dosage: 15 MG;QD;PO, 30 MG;QD;PO, 15 MG;QD;PO, 15 MG;QD;PO
     Route: 048
     Dates: start: 20100319, end: 20100331
  4. MIRTAZAPINE [Suspect]
     Indication: DEPRESSION
     Dosage: 15 MG;QD;PO, 30 MG;QD;PO, 15 MG;QD;PO, 15 MG;QD;PO
     Route: 048
     Dates: start: 20100406
  5. SIMVAHEXAL (CON.) [Concomitant]
  6. QUILONUM /00033702/ (CON.) [Concomitant]
  7. DIAZEPAM (CON.) [Concomitant]
  8. PAROXAT (CON.) [Concomitant]

REACTIONS (4)
  - BLOOD CHOLESTEROL INCREASED [None]
  - BLOOD TRIGLYCERIDES INCREASED [None]
  - HYPERLIPIDAEMIA [None]
  - WEIGHT INCREASED [None]
